FAERS Safety Report 6102003-8 (Version None)
Quarter: 2009Q1

REPORT INFORMATION
  Report Type: 
  Country: None (occurrence: None)
  Receive Date: 20090303
  Receipt Date: 20090303
  Transmission Date: 20090719
  Serious: Yes (Other)
  Sender: FDA-Public Use
  Company Number: None

PATIENT
  Age: 34 Year
  Sex: Female
  Weight: 83.9154 kg

DRUGS (1)
  1. AZITHROMYCIN [Suspect]
     Indication: SINUSITIS
     Dosage: 2 PILLS ON FIRST DAY ONCE A DAY 1 PILL FOR DAYS 2-5 ONCE A DAY
     Dates: start: 20090218, end: 20090222

REACTIONS (5)
  - HEADACHE [None]
  - LIP SWELLING [None]
  - SWELLING FACE [None]
  - UNEVALUABLE EVENT [None]
  - URTICARIA [None]
